FAERS Safety Report 8182424 (Version 3)
Quarter: 2013Q1

REPORT INFORMATION
  Report Type: Spontaneous
  Country: US (occurrence: US)
  Receive Date: 20111015
  Receipt Date: 20130122
  Transmission Date: 20140127
  Serious: Yes (Hospitalization, Other)
  Sender: FDA-Public Use
  Company Number: US-ASTRAZENECA-2010SE38096

PATIENT
  Age: 63 Year
  Sex: Female

DRUGS (2)
  1. NEXIUM [Suspect]
     Route: 048
  2. PLENDIL [Suspect]
     Route: 048

REACTIONS (10)
  - Pneumonia aspiration [Unknown]
  - Abdominal distension [Unknown]
  - Hiatus hernia [Unknown]
  - Neoplasm [Unknown]
  - Precancerous cells present [Unknown]
  - Colon neoplasm [Unknown]
  - Abdominal pain upper [Unknown]
  - Nephrolithiasis [Unknown]
  - Incorrect dose administered [Unknown]
  - Drug dose omission [Unknown]
